FAERS Safety Report 8458396-X (Version None)
Quarter: 2012Q2

REPORT INFORMATION
  Report Type: 
  Country: None (occurrence: None)
  Receive Date: 20120622
  Receipt Date: 20120611
  Transmission Date: 20120825
  Serious: Yes (Hospitalization)
  Sender: FDA-Public Use
  Company Number: US-SANOFI-AVENTIS-2012SA041851

PATIENT
  Age: 79 Year
  Sex: Female
  Weight: 56.3 kg

DRUGS (13)
  1. AMIODARONE HYDROCHLORIDE [Suspect]
  2. PLAVIX [Concomitant]
  3. CALCIUM CHANNEL BLOCKERS [Concomitant]
  4. MULTAQ [Suspect]
     Indication: ATRIAL FIBRILLATION
     Route: 065
     Dates: start: 20090101
  5. CARDIZEM [Suspect]
  6. PRILOSEC [Concomitant]
  7. NORPACE [Suspect]
     Indication: ATRIAL FIBRILLATION
     Route: 048
  8. COENZYME Q10 [Concomitant]
  9. BETA BLOCKING AGENTS [Suspect]
  10. CALCITONIN SALMON [Concomitant]
  11. COZAAR [Suspect]
  12. DABIGATRAN ETEXILATE [Concomitant]
  13. LEVOTHYROXINE [Concomitant]

REACTIONS (7)
  - ANAEMIA [None]
  - FALL [None]
  - THORACIC VERTEBRAL FRACTURE [None]
  - DRY MOUTH [None]
  - BLOOD CHOLESTEROL INCREASED [None]
  - HIP FRACTURE [None]
  - FEMUR FRACTURE [None]
